FAERS Safety Report 4559817-5 (Version None)
Quarter: 2005Q1

REPORT INFORMATION
  Report Type: 
  Country: None (occurrence: None)
  Receive Date: 20050124
  Receipt Date: 20041026
  Transmission Date: 20050727
  Serious: Yes (Disabling, Other)
  Sender: FDA-Public Use
  Company Number: US-MERCK-0410USA03966

PATIENT
  Age: 64 Year
  Sex: Female

DRUGS (7)
  1. VIOXX [Suspect]
     Indication: PAIN
     Route: 048
     Dates: start: 20040101, end: 20040930
  2. VIOXX [Suspect]
     Indication: ARTHRITIS
     Route: 048
     Dates: start: 20040101, end: 20040930
  3. VITAMINS (UNSPECIFIED) [Concomitant]
     Route: 065
  4. MACROBID [Concomitant]
     Indication: URINARY TRACT INFECTION
     Route: 065
  5. MAXZIDE [Concomitant]
     Route: 048
  6. PREDNISONE [Concomitant]
     Route: 065
  7. MEDROL [Concomitant]
     Route: 065

REACTIONS (7)
  - BLOOD PRESSURE INCREASED [None]
  - CONNECTIVE TISSUE DISORDER [None]
  - GENERALISED OEDEMA [None]
  - ORBITAL OEDEMA [None]
  - OROPHARYNGEAL SWELLING [None]
  - SWELLING FACE [None]
  - VASCULITIS [None]
